FAERS Safety Report 8321314-9 (Version None)
Quarter: 2012Q2

REPORT INFORMATION
  Report Type: 
  Country: None (occurrence: None)
  Receive Date: 20120430
  Receipt Date: 20120418
  Transmission Date: 20120825
  Serious: Yes (Other)
  Sender: FDA-Public Use
  Company Number: TW-JNJFOC-20120308182

PATIENT
  Age: 32 Year
  Sex: Male

DRUGS (2)
  1. LISTERINE COOLMINT [Suspect]
     Indication: DENTAL DISORDER PROPHYLAXIS
     Route: 048
  2. LISTERINE CITRUS MOUTHWASH [Suspect]
     Indication: DENTAL DISORDER PROPHYLAXIS
     Dosage: 20 ML KEPT IN MOUTH FOR 20 SECONDS, OCCASIONALLY
     Route: 048
     Dates: start: 20120307

REACTIONS (3)
  - WRONG TECHNIQUE IN DRUG USAGE PROCESS [None]
  - TONGUE ULCERATION [None]
  - ORAL DISORDER [None]
